FAERS Safety Report 15979193 (Version 1)
Quarter: 2019Q1

REPORT INFORMATION
  Report Type: Spontaneous
  Country: US (occurrence: US)
  Receive Date: 20190215
  Receipt Date: 20190215
  Transmission Date: 20190418
  Serious: Yes (Other)
  Sender: FDA-Public Use
  Company Number: None

PATIENT
  Age: 43 Year
  Sex: Female
  Weight: 57.6 kg

DRUGS (1)
  1. INJECTAFER [Suspect]
     Active Substance: FERRIC CARBOXYMALTOSE
     Indication: IRON DEFICIENCY
     Dates: start: 20190207, end: 20190207

REACTIONS (3)
  - Bone pain [None]
  - Infusion related reaction [None]
  - Fatigue [None]

NARRATIVE: CASE EVENT DATE: 20190207
